FAERS Safety Report 7488600-6 (Version None)
Quarter: 2011Q2

REPORT INFORMATION
  Report Type: 
  Country: None (occurrence: None)
  Receive Date: 20110518
  Receipt Date: 20110512
  Transmission Date: 20111010
  Serious: Yes (Hospitalization, Other)
  Sender: FDA-Public Use
  Company Number: LT-AMGEN-KDC422894

PATIENT
  Age: 70 Year
  Sex: Male

DRUGS (4)
  1. CALCIGRAN FORTE [Concomitant]
  2. QUINAPRIL HCL [Concomitant]
  3. DENOSUMAB [Suspect]
     Indication: PROSTATE CANCER
     Dosage: UNK UNK, Q4WK
     Route: 058
     Dates: start: 20080314
  4. OMNIC [Concomitant]

REACTIONS (1)
  - OSTEOMYELITIS [None]
